FAERS Safety Report 7121903-3 (Version None)
Quarter: 2010Q4

REPORT INFORMATION
  Report Type: 
  Country: None (occurrence: None)
  Receive Date: 20101124
  Receipt Date: 20101119
  Transmission Date: 20110411
  Serious: Yes (Death)
  Sender: FDA-Public Use
  Company Number: GB-ROCHE-743646

PATIENT
  Sex: Female
  Weight: 62.5 kg

DRUGS (15)
  1. TRASTUZUMAB [Suspect]
     Indication: BREAST CANCER
     Route: 042
     Dates: start: 20090825, end: 20090825
  2. TRASTUZUMAB [Suspect]
     Route: 042
     Dates: start: 20091118
  3. AMOXICILLIN [Concomitant]
     Indication: INFECTION
     Dosage: FREQUENCY: STAT
     Route: 042
     Dates: start: 20090916, end: 20090916
  4. AMOXICILLIN [Concomitant]
     Dosage: FREQUENCY: QDS
     Route: 042
     Dates: start: 20091209, end: 20091211
  5. METRONIDAZOLE [Concomitant]
     Indication: INFECTION
     Dosage: FREQUENCY: STAT
     Route: 042
     Dates: start: 20090916, end: 20090916
  6. PARACETAMOL [Concomitant]
     Indication: PAIN
     Dosage: FREQUENCY: QDS
     Route: 048
     Dates: start: 20090915
  7. CODEINE [Concomitant]
     Indication: PAIN
     Dosage: FREQUENCY: QDS
     Route: 048
     Dates: start: 20090915
  8. EXEMESTANE [Concomitant]
     Indication: BREAST CANCER
     Route: 048
  9. EXEMESTANE [Concomitant]
     Dosage: FREQUENCY: QDS
     Route: 048
  10. EXEMESTANE [Concomitant]
     Route: 048
  11. ADCAL D3 [Concomitant]
     Indication: BREAST CANCER
     Route: 048
  12. ALENDRONIC ACID [Concomitant]
     Indication: BREAST CANCER
     Route: 048
  13. FRAGMIN [Concomitant]
     Indication: THROMBOSIS PROPHYLAXIS
     Route: 058
     Dates: start: 20090915, end: 20090919
  14. FRAGMIN [Concomitant]
     Route: 058
     Dates: start: 20091209, end: 20091211
  15. MUPIROCIN [Concomitant]
     Dosage: FREQUENCY: QDS
     Route: 061
     Dates: start: 20091220, end: 20091222

REACTIONS (1)
  - DEATH [None]
